FAERS Safety Report 8917195 (Version 1)
Quarter: 2012Q4

REPORT INFORMATION
  Report Type: 
  Country: US (occurrence: US)
  Receive Date: 20121120
  Receipt Date: 20121120
  Transmission Date: 20130627
  Serious: No
  Sender: FDA-Public Use
  Company Number: US-PFIZER INC-2012286617

PATIENT
  Age: 21 Year
  Sex: Female

DRUGS (1)
  1. RAPAMUNE [Suspect]
     Indication: KIDNEY TRANSPLANT
     Dosage: 2 mg- 2, 2x/day
     Route: 048
     Dates: start: 20090901, end: 20121018

REACTIONS (1)
  - Blood creatinine abnormal [Unknown]
